FAERS Safety Report 19332221 (Version 1)
Quarter: 2021Q2

REPORT INFORMATION
  Report Type: Spontaneous
  Country: CO (occurrence: CO)
  Receive Date: 20210529
  Receipt Date: 20210529
  Transmission Date: 20210717
  Serious: Yes (Other)
  Sender: FDA-Public Use
  Company Number: CO-AMGEN-COLSP2021079535

PATIENT
  Age: 52 Year
  Sex: Female
  Weight: 42 kg

DRUGS (13)
  1. FOSAPREPITANT [Concomitant]
     Active Substance: FOSAPREPITANT
     Indication: ACUTE CORONARY SYNDROME
  2. ONDANSETRON [Concomitant]
     Active Substance: ONDANSETRON
     Indication: OVARIAN CANCER STAGE III
     Dosage: 16 MILLIGRAM, QD
     Dates: start: 20201201
  3. PEGFILGRASTIM [Concomitant]
     Active Substance: PEGFILGRASTIM
     Indication: OVARIAN CANCER STAGE III
     Dosage: 6MG/0.6ML, QD
     Route: 058
     Dates: start: 20201201
  4. ONDANSETRON [Concomitant]
     Active Substance: ONDANSETRON
     Indication: ACUTE CORONARY SYNDROME
  5. MVASI [Suspect]
     Active Substance: BEVACIZUMAB-AWWB
     Indication: ACUTE CORONARY SYNDROME
  6. PEGFILGRASTIM [Concomitant]
     Active Substance: PEGFILGRASTIM
     Indication: ACUTE CORONARY SYNDROME
  7. DEXAMETHASONE PHOSPHATE [Concomitant]
     Active Substance: DEXAMETHASONE PHOSPHATE
     Indication: OVARIAN CANCER STAGE III
     Dosage: 16 MILLIGRAM
     Route: 042
     Dates: start: 20201201
  8. DEXAMETHASONE PHOSPHATE [Concomitant]
     Active Substance: DEXAMETHASONE PHOSPHATE
     Indication: ACUTE CORONARY SYNDROME
  9. MVASI [Suspect]
     Active Substance: BEVACIZUMAB-AWWB
     Indication: OVARIAN CANCER
     Dosage: 420 MILLIGRAM
     Route: 042
     Dates: start: 20201201
  10. LIPOSOMAL DOXORUBICIN [Concomitant]
     Active Substance: DOXORUBICIN HYDROCHLORIDE
     Indication: OVARIAN CANCER STAGE III
     Dosage: 39.9 MILLIGRAM, QD
     Route: 042
     Dates: start: 20201201
  11. FOSAPREPITANT [Concomitant]
     Active Substance: FOSAPREPITANT
     Indication: OVARIAN CANCER STAGE III
     Dosage: 150 MILLIGRAM, QD
     Dates: start: 20201201
  12. CARBOPLATIN. [Concomitant]
     Active Substance: CARBOPLATIN
     Dosage: 445.85 MILLIGRAM, QD
     Route: 042
     Dates: start: 20201201
  13. LIPOSOMAL DOXORUBICIN [Concomitant]
     Active Substance: DOXORUBICIN HYDROCHLORIDE
     Indication: ACUTE CORONARY SYNDROME

REACTIONS (3)
  - Constipation [Recovering/Resolving]
  - Off label use [Unknown]
  - Pleural effusion [Not Recovered/Not Resolved]

NARRATIVE: CASE EVENT DATE: 20201201
